FAERS Safety Report 8463746-4 (Version None)
Quarter: 2012Q2

REPORT INFORMATION
  Report Type: 
  Country: None (occurrence: None)
  Receive Date: 20120625
  Receipt Date: 20120621
  Transmission Date: 20120825
  Serious: Yes (Other)
  Sender: FDA-Public Use
  Company Number: PHHY2012US053041

PATIENT
  Age: 23 Month
  Sex: Male

DRUGS (1)
  1. METHYLPHENIDATE [Suspect]

REACTIONS (3)
  - TORTICOLLIS [None]
  - ACCIDENTAL EXPOSURE [None]
  - DYSKINESIA [None]
